FAERS Safety Report 8555562-X (Version None)
Quarter: 2012Q3

REPORT INFORMATION
  Report Type: 
  Country: None (occurrence: None)
  Receive Date: 20120731
  Receipt Date: 20110802
  Transmission Date: 20120928
  Serious: No
  Sender: FDA-Public Use
  Company Number: US-ASTRAZENECA-2009SE33862

PATIENT
  Age: 62 Year
  Sex: Female

DRUGS (3)
  1. SEROQUEL [Suspect]
     Route: 048
  2. SEROQUEL [Suspect]
     Route: 048
  3. NEURONTIN [Concomitant]

REACTIONS (6)
  - INSOMNIA [None]
  - DRUG EFFECT DECREASED [None]
  - FEELING ABNORMAL [None]
  - MUSCLE SPASMS [None]
  - DRUG DOSE OMISSION [None]
  - PAIN IN EXTREMITY [None]
